FAERS Safety Report 18798854 (Version 1)
Quarter: 2021Q1

REPORT INFORMATION
  Report Type: Spontaneous
  Country: US (occurrence: US)
  Receive Date: 20210127
  Receipt Date: 20210127
  Transmission Date: 20210419
  Serious: Yes (Other)
  Sender: FDA-Public Use
  Company Number: None

PATIENT
  Age: 65 Year
  Sex: Female
  Weight: 56.25 kg

DRUGS (16)
  1. LODORAL (IODINE/IODIDE SUPPLEMENT) [Concomitant]
  2. MELATONIN [Concomitant]
     Active Substance: MELATONIN
  3. UNITHROID [Concomitant]
     Active Substance: LEVOTHYROXINE SODIUM
  4. ASHWAGANDHA [Concomitant]
     Active Substance: HERBALS
  5. LIPOSOMAL VITAMIN C [Concomitant]
  6. N?ACETYL CYSTEINE WITH SELENIUM AND MOLYBDENUM [Concomitant]
  7. ASPIRIN. [Concomitant]
     Active Substance: ASPIRIN
  8. PROLIA [Concomitant]
     Active Substance: DENOSUMAB
  9. PROBIOTIC [Concomitant]
     Active Substance: PROBIOTICS NOS
  10. VITAMIN B COMPLEX [Concomitant]
     Active Substance: CYANOCOBALAMIN\DEXPANTHENOL\NIACINAMIDE\PYRIDOXINE HYDROCHLORIDE\RIBOFLAVIN 5^-PHOSPHATE SODIUM\THIAMINE HYDROCHLORIDE\VITAMIN B COMPLEX
  11. MULTIVITAMIN [Concomitant]
     Active Substance: VITAMINS
  12. FOLATE [Concomitant]
     Active Substance: FOLATE SODIUM
  13. VITAMIN D3 [Concomitant]
     Active Substance: CHOLECALCIFEROL
  14. PROLIA [Suspect]
     Active Substance: DENOSUMAB
     Indication: OSTEOPOROSIS
     Dosage: ?          OTHER FREQUENCY:EVERY 6 MONTHS;?
     Route: 030
  15. MOMETASONE [Concomitant]
     Active Substance: MOMETASONE
  16. UNISOM SLEEPTABS [Concomitant]
     Active Substance: DOXYLAMINE SUCCINATE

REACTIONS (1)
  - Pain [None]

NARRATIVE: CASE EVENT DATE: 20201217
